FAERS Safety Report 8473819-8 (Version None)
Quarter: 2012Q2

REPORT INFORMATION
  Report Type: 
  Country: None (occurrence: None)
  Receive Date: 20120628
  Receipt Date: 20111230
  Transmission Date: 20120825
  Serious: Yes (Other)
  Sender: FDA-Public Use
  Company Number: US-MYLANLABS-2011S1024963

PATIENT
  Age: 46 Year
  Sex: Female
  Weight: 83.92 kg

DRUGS (8)
  1. ASPIRIN [Concomitant]
  2. SYNTHROID [Concomitant]
  3. METFORMIN HCL [Concomitant]
  4. EXELON [Concomitant]
  5. GEODON [Concomitant]
  6. LAMICTAL [Concomitant]
  7. CLOZAPINE [Suspect]
     Indication: SCHIZOAFFECTIVE DISORDER
     Route: 048
     Dates: start: 20110815, end: 20110827
  8. CLOZAPINE [Suspect]
     Route: 048
     Dates: start: 20110827, end: 20110914

REACTIONS (2)
  - WHITE BLOOD CELL COUNT DECREASED [None]
  - GRANULOCYTOPENIA [None]
